FAERS Safety Report 7574471-6 (Version None)
Quarter: 2011Q2

REPORT INFORMATION
  Report Type: 
  Country: None (occurrence: None)
  Receive Date: 20110627
  Receipt Date: 20110609
  Transmission Date: 20111010
  Serious: Yes (Hospitalization, Other)
  Sender: FDA-Public Use
  Company Number: US-BAYER-201027991NA

PATIENT
  Age: 25 Year
  Sex: Female
  Weight: 68.027 kg

DRUGS (2)
  1. YAZ [Concomitant]
     Indication: ORAL CONTRACEPTION
  2. YASMIN [Suspect]
     Dosage: UNK UNK, UNK
     Route: 048
     Dates: start: 20050101, end: 20070101

REACTIONS (6)
  - ABDOMINAL PAIN [None]
  - DIARRHOEA [None]
  - GALLBLADDER DISORDER [None]
  - WEIGHT DECREASED [None]
  - NAUSEA [None]
  - BILIARY DYSKINESIA [None]
